FAERS Safety Report 21279123 (Version 1)
Quarter: 2022Q3

REPORT INFORMATION
  Report Type: Spontaneous
  Country: US (occurrence: None)
  Receive Date: 20220901
  Receipt Date: 20220901
  Transmission Date: 20221027
  Serious: No
  Sender: FDA-Public Use
  Company Number: US-Shield TX (UK) Ltd-US-STX-22-00016

PATIENT
  Age: 38 Year
  Sex: Female

DRUGS (2)
  1. ACCRUFER [Suspect]
     Active Substance: FERRIC MALTOL
     Indication: Product used for unknown indication
     Route: 048
     Dates: start: 20220602
  2. ACCRUFER [Suspect]
     Active Substance: FERRIC MALTOL
     Route: 048

REACTIONS (1)
  - Insomnia [Recovered/Resolved]
